FAERS Safety Report 6965966-4 (Version None)
Quarter: 2010Q3

REPORT INFORMATION
  Report Type: 
  Country: None (occurrence: None)
  Receive Date: 20100903
  Receipt Date: 20100820
  Transmission Date: 20110219
  Serious: No
  Sender: FDA-Public Use
  Company Number: US-PFIZER INC-2010103412

PATIENT
  Age: 78 Year
  Sex: Female

DRUGS (5)
  1. TOVIAZ [Suspect]
     Indication: URINARY INCONTINENCE
     Dosage: 4 MG, DAILY
     Route: 048
     Dates: start: 20100201
  2. GABAPENTIN [Concomitant]
     Indication: RESTLESS LEGS SYNDROME
     Dosage: UNK, 3X/DAY
     Route: 048
  3. XANAX [Concomitant]
     Indication: NERVOUSNESS
     Dosage: 25 MG, AS NEEDED
     Route: 048
  4. AZULFIDINE [Concomitant]
     Indication: GASTROINTESTINAL DISORDER
     Dosage: 500 MG, 2X/DAY
     Route: 048
  5. HYDROCODONE [Concomitant]
     Indication: PAIN
     Dosage: UNK, EVERY SIX HOURS AS NEEDED
     Route: 048

REACTIONS (1)
  - DRUG INEFFECTIVE [None]
